FAERS Safety Report 25478632 (Version 3)
Quarter: 2025Q4

REPORT INFORMATION
  Report Type: Spontaneous
  Country: US (occurrence: US)
  Receive Date: 20250625
  Receipt Date: 20251230
  Transmission Date: 20260118
  Serious: No
  Sender: TAKEDA
  Company Number: US-TAKEDA-2025TUS057489

PATIENT
  Age: 48 Year
  Sex: Male

DRUGS (2)
  1. EOHILIA [Suspect]
     Active Substance: BUDESONIDE
     Indication: Eosinophilic oesophagitis
     Dosage: UNK UNK, QD
  2. EOHILIA [Suspect]
     Active Substance: BUDESONIDE
     Dosage: UNK UNK, QOD

REACTIONS (2)
  - No adverse event [Unknown]
  - Product prescribing error [Unknown]
